FAERS Safety Report 7338722-5 (Version None)
Quarter: 2011Q1

REPORT INFORMATION
  Report Type: 
  Country: None (occurrence: None)
  Receive Date: 20110308
  Receipt Date: 20110302
  Transmission Date: 20110831
  Serious: Yes (Hospitalization)
  Sender: FDA-Public Use
  Company Number: B0702426A

PATIENT
  Sex: Female

DRUGS (4)
  1. TAKEPRON [Concomitant]
     Indication: GASTRITIS
     Dosage: 30MG PER DAY
     Route: 042
     Dates: start: 20110222
  2. REVOLADE [Suspect]
     Indication: IDIOPATHIC THROMBOCYTOPENIC PURPURA
     Dosage: 37.5MG PER DAY
     Route: 048
     Dates: start: 20101215, end: 20110222
  3. PREDNISOLONE [Concomitant]
     Indication: IDIOPATHIC THROMBOCYTOPENIC PURPURA
     Dosage: 10MG PER DAY
  4. ALFAROL [Concomitant]
     Indication: OSTEOPOROSIS
     Dosage: .5MCG PER DAY
     Route: 048
     Dates: start: 20110222

REACTIONS (7)
  - CEREBRAL INFARCTION [None]
  - DECREASED APPETITE [None]
  - ALTERED STATE OF CONSCIOUSNESS [None]
  - PYREXIA [None]
  - PULMONARY INFARCTION [None]
  - OXYGEN SATURATION DECREASED [None]
  - MALAISE [None]
